FAERS Safety Report 5125761-8 (Version None)
Quarter: 2006Q4

REPORT INFORMATION
  Report Type: 
  Country: None (occurrence: None)
  Receive Date: 20061012
  Receipt Date: 20060928
  Transmission Date: 20070319
  Serious: Yes (Hospitalization)
  Sender: FDA-Public Use
  Company Number: HQWYE390529SEP06

PATIENT
  Sex: Female
  Weight: 54 kg

DRUGS (5)
  1. ENBREL [Suspect]
     Indication: RHEUMATOID ARTHRITIS
     Route: 058
     Dates: start: 20030303, end: 20060901
  2. LEFLUNOMIDE [Suspect]
     Indication: RHEUMATOID ARTHRITIS
     Dates: end: 20060901
  3. OLMESARTAN [Concomitant]
  4. ATORVASTATIN CALCIUM [Concomitant]
  5. MEPREDNISONE [Concomitant]
     Indication: RHEUMATOID ARTHRITIS

REACTIONS (3)
  - HAEMATOMA [None]
  - PLATELET COUNT DECREASED [None]
  - RASH GENERALISED [None]
